FAERS Safety Report 6499024-2 (Version None)
Quarter: 2009Q4

REPORT INFORMATION
  Report Type: 
  Country: None (occurrence: None)
  Receive Date: 20091215
  Receipt Date: 20091207
  Transmission Date: 20100525
  Serious: Yes (Other)
  Sender: FDA-Public Use
  Company Number: BR-ASTRAZENECA-2009SE30694

PATIENT
  Age: 24 Year
  Sex: Female
  Weight: 78 kg

DRUGS (1)
  1. NEXIUM [Suspect]
     Indication: GASTRITIS
     Dosage: OD
     Route: 048
     Dates: start: 20091205, end: 20091206

REACTIONS (2)
  - DRUG DOSE OMISSION [None]
  - MIGRAINE [None]
